FAERS Safety Report 18391217 (Version 1)
Quarter: 2020Q4

REPORT INFORMATION
  Report Type: Spontaneous
  Country: US (occurrence: US)
  Receive Date: 20201015
  Receipt Date: 20201015
  Transmission Date: 20210114
  Serious: Yes (Hospitalization)
  Sender: FDA-Public Use
  Company Number: None

PATIENT
  Sex: Male
  Weight: 24 kg

DRUGS (4)
  1. CYCLOPHOSPHAMIDE (26271) [Suspect]
     Active Substance: CYCLOPHOSPHAMIDE
     Dates: end: 20200928
  2. DOXORUBICIN HYDROCHLORIDE. [Suspect]
     Active Substance: DOXORUBICIN HYDROCHLORIDE
     Dates: start: 20200928
  3. MESNA. [Suspect]
     Active Substance: MESNA
     Dates: end: 20200929
  4. VINCRISTINE [Suspect]
     Active Substance: VINCRISTINE
     Dates: end: 20200928

REACTIONS (5)
  - SARS-CoV-2 test positive [None]
  - Neutropenia [None]
  - Haemoglobin decreased [None]
  - Pyrexia [None]
  - Mucosal inflammation [None]

NARRATIVE: CASE EVENT DATE: 20201007
